FAERS Safety Report 20730487 (Version 1)
Quarter: 2022Q2

REPORT INFORMATION
  Report Type: Spontaneous
  Country: US (occurrence: None)
  Receive Date: 20220420
  Receipt Date: 20220420
  Transmission Date: 20220721
  Serious: Yes (Hospitalization)
  Sender: FDA-Public Use
  Company Number: None

PATIENT
  Age: 62 Year
  Sex: Female
  Weight: 85.3 kg

DRUGS (2)
  1. AZACITIDINE [Suspect]
     Active Substance: AZACITIDINE
     Dates: end: 20220307
  2. VENETOCLAX [Suspect]
     Active Substance: VENETOCLAX
     Dates: end: 20220325

REACTIONS (6)
  - Acute myeloid leukaemia [None]
  - Febrile neutropenia [None]
  - Mucosal inflammation [None]
  - Hypophagia [None]
  - Stomatitis [None]
  - Oedema peripheral [None]

NARRATIVE: CASE EVENT DATE: 20220325
